FAERS Safety Report 8842093 (Version 2)
Quarter: 2013Q1

REPORT INFORMATION
  Report Type: Spontaneous
  Country: US (occurrence: US)
  Receive Date: 20121016
  Receipt Date: 20130114
  Transmission Date: 20140127
  Serious: No
  Sender: FDA-Public Use
  Company Number: US-009507513-1210USA005424

PATIENT
  Age: 15 Year
  Sex: Female

DRUGS (2)
  1. DULERA [Suspect]
     Indication: ASTHMA
     Dosage: 2 DF, BID
     Route: 055
     Dates: start: 201206
  2. SINGULAIR [Concomitant]

REACTIONS (1)
  - Pharyngitis streptococcal [Recovering/Resolving]
